FAERS Safety Report 4849096-3 (Version None)
Quarter: 2005Q4

REPORT INFORMATION
  Report Type: 
  Country: None (occurrence: None)
  Receive Date: 20051209
  Receipt Date: 20051208
  Transmission Date: 20060501
  Serious: Yes (Other)
  Sender: FDA-Public Use
  Company Number: 200514609EU

PATIENT
  Age: 50 Year
  Sex: Female

DRUGS (4)
  1. NICORETTE [Suspect]
     Route: 002
     Dates: start: 20000101
  2. NICOTINE [Suspect]
     Route: 062
  3. URSODEOXYCHOLIC ACID [Concomitant]
     Indication: LIVER DISORDER
     Dates: start: 19950101
  4. LANSOPRAZOLE [Concomitant]
     Indication: GASTRIC DISORDER
     Dates: start: 20030101

REACTIONS (3)
  - DEPENDENCE [None]
  - MEDICATION ERROR [None]
  - OVERDOSE [None]
